FAERS Safety Report 9460372 (Version 1)
Quarter: 2013Q3

REPORT INFORMATION
  Report Type: Spontaneous
  Country: US (occurrence: US)
  Receive Date: 20130815
  Receipt Date: 20130815
  Transmission Date: 20140515
  Serious: Yes (Death, Hospitalization)
  Sender: FDA-Public Use
  Company Number: US-INCYTE CORPORATION-2013IN001823

PATIENT
  Sex: Female

DRUGS (6)
  1. JAKAFI [Suspect]
     Indication: MYELOFIBROSIS
     Dosage: 10 MG, BID
     Route: 048
  2. PAXIL [Concomitant]
  3. MULTIVITAMIN [Concomitant]
  4. ADVIL [Concomitant]
     Dosage: 200 MG
  5. LEVOTHYROXINE [Concomitant]
  6. ASPIRIN [Concomitant]
     Dosage: 81 MG

REACTIONS (1)
  - Hospitalisation [Unknown]
